FAERS Safety Report 13616183 (Version 3)
Quarter: 2017Q3

REPORT INFORMATION
  Report Type: Spontaneous
  Country: CH (occurrence: JP)
  Receive Date: 20170606
  Receipt Date: 20170706
  Transmission Date: 20171127
  Serious: Yes (Hospitalization, Other)
  Sender: FDA-Public Use
  Company Number: JP-CONCORDIA PHARMACEUTICALS INC.-GSH201706-003333

PATIENT
  Age: 72 Year
  Sex: Male

DRUGS (8)
  1. INDAPAMIDE (DIURETIC) [Suspect]
     Active Substance: INDAPAMIDE
     Indication: DIURETIC THERAPY
     Route: 048
  2. AMLODIPINE BESILATE (ANTIHYPERTENSIVE DRUG ) [Suspect]
     Active Substance: AMLODIPINE BESYLATE
     Route: 048
  3. TRIAMTEREN (DIURETIC) [Suspect]
     Active Substance: TRIAMTERENE
     Indication: DIURETIC THERAPY
     Route: 048
  4. IMIDAPRIL HYDROCHLORIDE (ANTIHYPERTENSIVE DRUG [Suspect]
     Active Substance: IMIDAPRIL HYDROCHLORIDE
     Route: 048
  5. ASPIRIN (ANTIPHLOGISTIC, ANALGESIA) [Suspect]
     Active Substance: ASPIRIN
     Indication: ANTIINFLAMMATORY THERAPY
     Route: 048
  6. ALLOPRINOL (URIC ACID SYNTHESIS INHIBITOR) [Suspect]
     Active Substance: ALLOPURINOL
     Route: 048
  7. DIGOXIN. [Suspect]
     Active Substance: DIGOXIN
     Route: 048
  8. ASPIRIN (ANTIPHLOGISTIC, ANALGESIA) [Suspect]
     Active Substance: ASPIRIN
     Indication: ANALGESIC THERAPY

REACTIONS (5)
  - Photophobia [None]
  - Visual acuity reduced [Recovered/Resolved]
  - Cataract [None]
  - Toxicity to various agents [None]
  - Toxicity to various agents [Unknown]
